FAERS Safety Report 5487289-5 (Version None)
Quarter: 2007Q4

REPORT INFORMATION
  Report Type: 
  Country: None (occurrence: None)
  Receive Date: 20071015
  Receipt Date: 20071003
  Transmission Date: 20080405
  Serious: Yes (Life-Threatening)
  Sender: FDA-Public Use
  Company Number: GXBR2007US01674

PATIENT
  Sex: Female

DRUGS (1)
  1. HYDROXYCHLOROQUINE SULFATE [Suspect]
     Dosage: 200 MG
     Dates: start: 20040923

REACTIONS (1)
  - TOXIC EPIDERMAL NECROLYSIS [None]
